FAERS Safety Report 9255407 (Version 1)
Quarter: 2013Q1

REPORT INFORMATION
  Report Type: Spontaneous
  Country: US (occurrence: None)
  Receive Date: 20121212
  Receipt Date: 20121212
  Transmission Date: 20140127
  Serious: No
  Sender: FDA-Public Use
  Company Number: 1209USA010378

PATIENT
  Sex: Female

DRUGS (1)
  1. VICTRELIS (BOCEPREVIR) CAPSULES [Suspect]
     Dosage: UNK, ORAL
     Route: 048
     Dates: start: 20120813, end: 20120903

REACTIONS (4)
  - Diarrhoea [None]
  - Nausea [None]
  - Vomiting [None]
  - Adverse event [None]
